FAERS Safety Report 10331999 (Version 1)
Quarter: 2014Q3

REPORT INFORMATION
  Report Type: Spontaneous
  Country: FI (occurrence: FI)
  Receive Date: 20140722
  Receipt Date: 20140722
  Transmission Date: 20150326
  Serious: Yes (Life-Threatening, Hospitalization, Disabling)
  Sender: FDA-Public Use
  Company Number: FI-BRISTOL-MYERS SQUIBB COMPANY-21189923

PATIENT
  Age: 66 Year
  Sex: Male

DRUGS (6)
  1. ELIQUIS [Suspect]
     Active Substance: APIXABAN
     Dosage: TAB
     Route: 048
     Dates: start: 20140514
  2. HUMALOG [Concomitant]
     Active Substance: INSULIN LISPRO
  3. CARDACE [Concomitant]
     Active Substance: RAMIPRIL
  4. DIGOXIN. [Concomitant]
     Active Substance: DIGOXIN
  5. EMCONCOR [Concomitant]
     Active Substance: BISOPROLOL FUMARATE
  6. DIFORMIN [Concomitant]

REACTIONS (2)
  - Cerebral infarction [Not Recovered/Not Resolved]
  - Cardiac failure [Unknown]

NARRATIVE: CASE EVENT DATE: 20140520
